FAERS Safety Report 14495520 (Version 4)
Quarter: 2018Q2

REPORT INFORMATION
  Report Type: Spontaneous
  Country: US (occurrence: US)
  Receive Date: 20180206
  Receipt Date: 20180628
  Transmission Date: 20180711
  Serious: Yes (Hospitalization, Other)
  Sender: FDA-Public Use
  Company Number: US-VIFOR (INTERNATIONAL) INC.-VIT-2018-01102

PATIENT
  Sex: Male
  Weight: 115.77 kg

DRUGS (11)
  1. CHLORTALIDONE [Concomitant]
     Active Substance: CHLORTHALIDONE
  2. PROPRANOLOL HYDROCHLORIDE. [Concomitant]
     Active Substance: PROPRANOLOL HYDROCHLORIDE
  3. COLECALCIFEROL [Concomitant]
     Active Substance: CHOLECALCIFEROL
  4. VITAMINS NOS [Concomitant]
     Active Substance: VITAMINS
  5. VELTASSA [Suspect]
     Active Substance: PATIROMER
     Indication: HYPERKALAEMIA
     Route: 048
     Dates: start: 20170203
  6. SODIUM POLYSTYRENE SULFONATE. [Concomitant]
     Active Substance: SODIUM POLYSTYRENE SULFONATE
  7. GABAPENTIN. [Concomitant]
     Active Substance: GABAPENTIN
  8. FLUOROURACIL. [Concomitant]
     Active Substance: FLUOROURACIL
  9. CICLOSPORIN [Concomitant]
     Active Substance: CYCLOSPORINE
  10. MYCOPHENOLATE MOFETIL. [Concomitant]
     Active Substance: MYCOPHENOLATE MOFETIL
  11. DAPSONE. [Concomitant]
     Active Substance: DAPSONE

REACTIONS (1)
  - Skin cancer [Unknown]
